FAERS Safety Report 24010537 (Version 1)
Quarter: 2024Q2

REPORT INFORMATION
  Report Type: Spontaneous
  Country: DE (occurrence: DE)
  Receive Date: 20240625
  Receipt Date: 20240625
  Transmission Date: 20240715
  Serious: Yes (Other)
  Sender: FDA-Public Use
  Company Number: DE-Merck Healthcare KGaA-2024018206

PATIENT
  Sex: Female

DRUGS (2)
  1. EUTHYROX [Suspect]
     Active Substance: LEVOTHYROXINE SODIUM
     Indication: Product used for unknown indication
  2. HEMP [Suspect]
     Active Substance: HEMP
     Indication: Product used for unknown indication
     Dosage: HEMP OIL CAPSULES

REACTIONS (6)
  - Cardiovascular disorder [Recovering/Resolving]
  - Cardiac failure [Recovering/Resolving]
  - Restlessness [Recovering/Resolving]
  - Depression [Unknown]
  - Weight decreased [Unknown]
  - Insomnia [Recovering/Resolving]
